FAERS Safety Report 11575412 (Version 1)
Quarter: 2015Q3

REPORT INFORMATION
  Report Type: Spontaneous
  Country: US (occurrence: US)
  Receive Date: 20150930
  Receipt Date: 20150930
  Transmission Date: 20151125
  Serious: No
  Sender: FDA-Public Use
  Company Number: US-BAYER-2015-433775

PATIENT
  Age: 10 Month
  Sex: Female
  Weight: 11.34 kg

DRUGS (1)
  1. CHILDREN CLARITIN ALLERGY [Suspect]
     Active Substance: LORATADINE
     Dosage: UNK, ONCE
     Route: 048

REACTIONS (1)
  - Accidental exposure to product by child [None]
